FAERS Safety Report 5063761-7 (Version None)
Quarter: 2006Q3

REPORT INFORMATION
  Report Type: 
  Country: None (occurrence: None)
  Receive Date: 20060703
  Receipt Date: 20051110
  Transmission Date: 20061208
  Serious: No
  Sender: FDA-Public Use
  Company Number: 2005S1011028

PATIENT
  Age: 59 Year
  Sex: Female

DRUGS (8)
  1. CLOZAPINE [Suspect]
     Indication: SCHIZOPHRENIA, PARANOID TYPE
     Dosage: 200 MG; TID; ORAL
     Route: 048
     Dates: start: 20050301
  2. LEVOTHYROXINE SODIUM [Concomitant]
  3. QUIAPINE FUMARATE [Concomitant]
  4. RISPERIDONE [Concomitant]
  5. VALPROATE SODIUM [Concomitant]
  6. CLONAZEPAM [Concomitant]
  7. CALCIUM GLUCONATE [Concomitant]
  8. ACETAMINOPHEN [Concomitant]

REACTIONS (1)
  - GRANULOCYTOPENIA [None]
